FAERS Safety Report 24588002 (Version 2)
Quarter: 2025Q4

REPORT INFORMATION
  Report Type: Spontaneous
  Country: US (occurrence: US)
  Receive Date: 20241107
  Receipt Date: 20251124
  Transmission Date: 20260117
  Serious: No
  Sender: INSMED
  Company Number: US-INSMED, INC.-2024-00235-US

PATIENT
  Sex: Male

DRUGS (1)
  1. ARIKAYCE [Suspect]
     Active Substance: AMIKACIN
     Indication: Product used for unknown indication
     Dosage: 590 MILLIGRAM, QD
     Route: 055
     Dates: start: 20220928, end: 20240830

REACTIONS (6)
  - Sleep disorder [Unknown]
  - Gastrointestinal disorder [Unknown]
  - Influenza [Recovering/Resolving]
  - Illness [Unknown]
  - Product dose omission issue [Unknown]
  - Intentional dose omission [Unknown]
